FAERS Safety Report 5716472-6 (Version None)
Quarter: 2008Q2

REPORT INFORMATION
  Report Type: 
  Country: None (occurrence: None)
  Receive Date: 20080415
  Receipt Date: 20070828
  Transmission Date: 20081010
  Serious: Yes (Hospitalization)
  Sender: FDA-Public Use
  Company Number: 2007-04062

PATIENT
  Age: 25 Year
  Sex: Female

DRUGS (2)
  1. FERRLECIT [Suspect]
     Indication: IRON DEFICIENCY ANAEMIA
     Dosage: 125MG/500ML NS OVER 45 MIN, INTRAVENOUS ; 62.5MG OVER 30 MIN, INTRAVENOUS
     Route: 042
     Dates: start: 20070814, end: 20070814
  2. FERRLECIT [Suspect]
     Indication: IRON DEFICIENCY ANAEMIA
     Dosage: 125MG/500ML NS OVER 45 MIN, INTRAVENOUS ; 62.5MG OVER 30 MIN, INTRAVENOUS
     Route: 042
     Dates: start: 20070821, end: 20070821

REACTIONS (5)
  - ANAPHYLACTOID REACTION [None]
  - DIZZINESS [None]
  - DRUG EXPOSURE DURING PREGNANCY [None]
  - DYSPNOEA [None]
  - LIP SWELLING [None]
